FAERS Safety Report 22648980 (Version 1)
Quarter: 2023Q2

REPORT INFORMATION
  Report Type: Report from Study
  Country: US (occurrence: US)
  Receive Date: 20230628
  Receipt Date: 20230628
  Transmission Date: 20230722
  Serious: Yes (Hospitalization)
  Sender: FDA-Public Use
  Company Number: US-JNJFOC-20230654027

PATIENT
  Age: 3 Decade
  Sex: Male
  Weight: 57.1 kg

DRUGS (3)
  1. INFLIXIMAB [Suspect]
     Active Substance: INFLIXIMAB
     Indication: Inflammatory bowel disease
     Route: 041
     Dates: start: 20160608, end: 20170316
  2. ENTYVIO [Concomitant]
     Active Substance: VEDOLIZUMAB
     Dates: start: 20170330, end: 20170817
  3. ENTYVIO [Concomitant]
     Active Substance: VEDOLIZUMAB
     Dosage: DATE OF LAST ADMINISTRATION PRIOR TO THE EVENT ON 21-NOV-2022
     Dates: start: 20210430

REACTIONS (2)
  - Hepatic encephalopathy [Recovered/Resolved]
  - Pouchitis [Recovered/Resolved]

NARRATIVE: CASE EVENT DATE: 20221129
